FAERS Safety Report 7221384-5 (Version None)
Quarter: 2011Q1

REPORT INFORMATION
  Report Type: 
  Country: None (occurrence: None)
  Receive Date: 20110112
  Receipt Date: 20110106
  Transmission Date: 20110831
  Serious: Yes (Other)
  Sender: FDA-Public Use
  Company Number: DE-PFIZER INC-2010121538

PATIENT
  Age: 71 Year
  Sex: Female

DRUGS (1)
  1. LYRICA [Suspect]
     Indication: DEPRESSION
     Dosage: 25 MG, UNK
     Dates: start: 20100917

REACTIONS (3)
  - SWELLING FACE [None]
  - EYE SWELLING [None]
  - CONJUNCTIVITIS [None]
